FAERS Safety Report 18756530 (Version 1)
Quarter: 2021Q1

REPORT INFORMATION
  Report Type: Spontaneous
  Country: US (occurrence: US)
  Receive Date: 20210118
  Receipt Date: 20210118
  Transmission Date: 20210419
  Serious: Yes (Death)
  Sender: FDA-Public Use
  Company Number: None

PATIENT
  Age: 98 Year
  Sex: Male
  Weight: 68.85 kg

DRUGS (20)
  1. RETACRIT [Suspect]
     Active Substance: EPOETIN ALFA-EPBX
     Indication: MYELODYSPLASTIC SYNDROME
     Dosage: ?          OTHER FREQUENCY:WEEKLY;?
     Route: 058
     Dates: start: 20201030, end: 20210118
  2. TIMOLOL MALEATE 0.25% [Concomitant]
     Active Substance: TIMOLOL MALEATE
  3. KEFLEX 250MG [Concomitant]
  4. DOXYCYCLINE HYCLATE 100MG [Concomitant]
     Active Substance: DOXYCYCLINE HYCLATE
  5. RETACRIT [Suspect]
     Active Substance: EPOETIN ALFA-EPBX
     Indication: ANAEMIA
     Dosage: ?          OTHER FREQUENCY:WEEKLY;?
     Route: 058
     Dates: start: 20201030, end: 20210118
  6. TESSALON PERLES 100MG [Concomitant]
  7. FOLIC ACID 1MG [Concomitant]
     Active Substance: FOLIC ACID
  8. MULTIVITAMIN [Concomitant]
     Active Substance: VITAMINS
  9. ASPIRIN 81MG [Concomitant]
     Active Substance: ASPIRIN
  10. FERROUS SULFATE 325MG [Concomitant]
     Active Substance: FERROUS SULFATE
  11. SODIUM CHLORIDE 0.65% [Concomitant]
     Active Substance: SODIUM CHLORIDE
  12. CELEXA [Concomitant]
     Active Substance: CITALOPRAM HYDROBROMIDE
  13. VOLTAREN [Concomitant]
     Active Substance: DICLOFENAC SODIUM
  14. VITAMIN D 2000 UNITS [Concomitant]
  15. NEURONTIN 100MG [Concomitant]
  16. NEURONTIN 300MG [Concomitant]
  17. MICONAZOLE 50MG [Concomitant]
  18. LATANOPROST 0.005% [Concomitant]
     Active Substance: LATANOPROST
  19. METOPROLOL SUCCINATE ER 50MG [Concomitant]
  20. BUMETANIDE 1MG [Concomitant]
     Active Substance: BUMETANIDE

REACTIONS (1)
  - Death [None]

NARRATIVE: CASE EVENT DATE: 20210118
